FAERS Safety Report 25571150 (Version 1)
Quarter: 2025Q3

REPORT INFORMATION
  Report Type: Spontaneous
  Country: US (occurrence: US)
  Receive Date: 20250717
  Receipt Date: 20250717
  Transmission Date: 20251020
  Serious: No
  Sender: ANI
  Company Number: US-ANIPHARMA-023578

PATIENT
  Sex: Male

DRUGS (8)
  1. VANCOMYCIN HYDROCHLORIDE [Suspect]
     Active Substance: VANCOMYCIN HYDROCHLORIDE
     Indication: Staphylococcal infection
  2. MINOCYCLINE [Concomitant]
     Active Substance: MINOCYCLINE HYDROCHLORIDE
     Indication: Staphylococcal infection
  3. DALBAVANCIN [Concomitant]
     Active Substance: DALBAVANCIN
     Indication: Staphylococcal infection
  4. TEDIZOLID [Concomitant]
     Active Substance: TEDIZOLID
     Indication: Staphylococcal infection
  5. MINOCYCLINE [Concomitant]
     Active Substance: MINOCYCLINE HYDROCHLORIDE
     Indication: Arthritis infective
  6. DALBAVANCIN [Concomitant]
     Active Substance: DALBAVANCIN
     Indication: Arthritis infective
  7. TEDIZOLID [Concomitant]
     Active Substance: TEDIZOLID
     Indication: Arthritis infective
  8. VANCOMYCIN HYDROCHLORIDE [Suspect]
     Active Substance: VANCOMYCIN HYDROCHLORIDE
     Indication: Arthritis infective

REACTIONS (2)
  - Adverse event [Unknown]
  - Drug tolerance [Unknown]
